FAERS Safety Report 5951024-4 (Version None)
Quarter: 2008Q4

REPORT INFORMATION
  Report Type: 
  Country: None (occurrence: None)
  Receive Date: 20081110
  Receipt Date: 20081027
  Transmission Date: 20090506
  Serious: Yes (Other)
  Sender: FDA-Public Use
  Company Number: DSU-2008-01781

PATIENT
  Age: 46 Year
  Sex: Female
  Weight: 81.6475 kg

DRUGS (12)
  1. BENICAR HCT [Suspect]
     Indication: HYPERTENSION
     Dosage: 20/12.5 MG (QD), PER ORAL
     Route: 048
  2. CYMBALTA [Suspect]
     Indication: DEPRESSION
     Dosage: , PER ORAL
     Route: 048
     Dates: start: 20071201, end: 20080101
  3. CYMBALTA [Suspect]
     Indication: DEPRESSION
     Dosage: , PER ORAL
     Route: 048
     Dates: start: 20080901
  4. DOXEPIN HCL [Suspect]
     Indication: SLEEP DISORDER
     Dosage: , PER ORAL
     Route: 048
     Dates: start: 20080828
  5. TOPROL XL (METOPROLOL SUCCINATE) (METOPROLOL SUCCINATE) [Concomitant]
  6. XANAX (ALPRAZOLAM) (ALPRAZOLAM) [Concomitant]
  7. NAPROSYN (NAPROXEN) (NAPROXEN) [Concomitant]
  8. ZONEGRAN (ZONISAMIDE) (ZONISAMIDE) [Concomitant]
  9. ASPIRIN (ACETYLSALICYLIC ACID) (81 MILLIGRAM) (ACETYLSALICYLIC ACID) [Concomitant]
  10. NEXIUM (ESOMEPRAZOLE MAGNESIUM) (ESOMEPRAZOLE MAGNESIUM) [Concomitant]
  11. BENTYL (DICYCLOVERINE HYDROCHLORIDE) (DICYCLOVERINE HYDROCHLORIDE) [Concomitant]
  12. VICODIN (PARACETAMOL, HYDROCODONE BITARTRATE) (PARACETAMOL, HYDROCODON [Concomitant]

REACTIONS (9)
  - DIZZINESS [None]
  - DRUG INTERACTION [None]
  - INSOMNIA [None]
  - LUMBAR SPINAL STENOSIS [None]
  - MOOD SWINGS [None]
  - MOVEMENT DISORDER [None]
  - MUSCLE DISORDER [None]
  - MUSCULOSKELETAL PAIN [None]
  - SUICIDAL IDEATION [None]
